FAERS Safety Report 5395574-0 (Version None)
Quarter: 2007Q3

REPORT INFORMATION
  Report Type: 
  Country: None (occurrence: None)
  Receive Date: 20070724
  Receipt Date: 20070710
  Transmission Date: 20080115
  Serious: Yes (Death, Other)
  Sender: FDA-Public Use
  Company Number: US-SHR-US-2007-026319

PATIENT
  Age: 64 Year
  Sex: Male

DRUGS (4)
  1. FLUDARA (UNK. FORMULATION) [Suspect]
     Dosage: 25 MG/M2, CYCLE X 5D
  2. FLUDARA (UNK. FORMULATION) [Suspect]
     Dosage: 25 MG/M2, CYCLE X 5D
  3. FLUDARA (UNK. FORMULATION) [Suspect]
     Dosage: 25 MG/M2, CYCLE X 5D
  4. RITUXAN [Concomitant]
     Indication: B-CELL LYMPHOMA

REACTIONS (2)
  - ACUTE MYELOID LEUKAEMIA [None]
  - CHRONIC MYELOMONOCYTIC LEUKAEMIA [None]
